FAERS Safety Report 9209656 (Version 1)
Quarter: 2013Q2

REPORT INFORMATION
  Report Type: Spontaneous
  Country: US (occurrence: US)
  Receive Date: 20130404
  Receipt Date: 20130404
  Transmission Date: 20140414
  Serious: No
  Sender: FDA-Public Use
  Company Number: US-VERTEX PHARMACEUTICALS INC.-2013-004440

PATIENT
  Age: 47 Year
  Sex: Male
  Weight: 68 kg

DRUGS (4)
  1. INCIVEK [Suspect]
     Indication: HEPATITIS C
     Dosage: 750 MG, TID
     Route: 048
     Dates: start: 20130322
  2. PEGASYS [Suspect]
     Indication: HEPATITIS C
     Dosage: 180 ?G, QW
     Route: 058
     Dates: start: 20130322
  3. COPEGUS [Suspect]
     Indication: HEPATITIS C
     Dosage: 600 MG IN AM, 400 MG IN PM
     Dates: start: 20130322, end: 20130325
  4. ZOFRAN [Concomitant]
     Dosage: UNK
     Dates: start: 20121222

REACTIONS (7)
  - Influenza like illness [Recovered/Resolved]
  - Eye discharge [Not Recovered/Not Resolved]
  - Poor quality sleep [Not Recovered/Not Resolved]
  - Eyelid oedema [Recovered/Resolved]
  - Rash generalised [Not Recovered/Not Resolved]
  - Vomiting [Recovered/Resolved]
  - Pruritus [Not Recovered/Not Resolved]
